FAERS Safety Report 8852429 (Version 2)
Quarter: 2012Q4

REPORT INFORMATION
  Report Type: 
  Country: JP (occurrence: JP)
  Receive Date: 20121022
  Receipt Date: 20121109
  Transmission Date: 20130627
  Serious: Yes (Hospitalization, Other)
  Sender: FDA-Public Use
  Company Number: JP-ELI_LILLY_AND_COMPANY-JP201210000752

PATIENT
  Age: 62 Year
  Sex: Male

DRUGS (15)
  1. ALIMTA [Suspect]
     Indication: BRONCHIOLOALVEOLAR CARCINOMA
     Dosage: UNK
     Route: 042
     Dates: start: 20120412, end: 2012
  2. ALIMTA [Suspect]
     Dosage: UNK
     Route: 042
     Dates: start: 20120516, end: 2012
  3. ALIMTA [Suspect]
     Dosage: 500 mg, other
     Route: 042
     Dates: start: 20120810, end: 20120918
  4. CISPLATIN [Concomitant]
     Indication: BRONCHIOLOALVEOLAR CARCINOMA
     Dosage: UNK
     Dates: start: 20120412, end: 2012
  5. BEVACIZUMAB [Concomitant]
     Indication: BRONCHIOLOALVEOLAR CARCINOMA
     Dosage: UNK
     Dates: start: 20120412, end: 2012
  6. CARBOPLATIN [Concomitant]
     Indication: BRONCHIOLOALVEOLAR CARCINOMA
     Dosage: UNK
     Dates: start: 20120516, end: 2012
  7. SODIUM CHLORIDE [Concomitant]
     Dosage: 100 ml, UNK
     Route: 042
  8. DEXART [Concomitant]
     Indication: PROPHYLAXIS OF NAUSEA AND VOMITING
     Dosage: UNK
     Route: 042
     Dates: start: 20120810, end: 20120918
  9. GRANISETRON [Concomitant]
     Indication: PROPHYLAXIS OF NAUSEA AND VOMITING
     Dosage: UNK
     Route: 042
  10. PANVITAN [Concomitant]
     Indication: PROPHYLAXIS
     Dosage: 1 g, each morning
     Route: 048
  11. GASTER [Concomitant]
     Indication: PROPHYLAXIS
     Dosage: 20 mg, each morning
     Route: 048
  12. BLOPRESS [Concomitant]
     Indication: HYPERTENSION
     Dosage: 4 mg, each morning
     Route: 048
  13. BENZALIN [Concomitant]
     Indication: INSOMNIA
     Dosage: 5 mg, qd
     Route: 048
  14. MAGLAX [Concomitant]
     Indication: CONSTIPATION
     Dosage: 660 mg, bid
     Route: 048
  15. CHLORPHENIRAMINE MALEATE [Concomitant]
     Indication: RHINITIS ALLERGIC
     Dosage: 2 mg, bid
     Route: 048

REACTIONS (4)
  - Pulmonary artery thrombosis [Recovering/Resolving]
  - Venous thrombosis limb [Recovering/Resolving]
  - Gastrointestinal haemorrhage [Unknown]
  - Melaena [Unknown]
